FAERS Safety Report 9236119 (Version 2)
Quarter: 2013Q2

REPORT INFORMATION
  Report Type: Spontaneous
  Country: NO (occurrence: NO)
  Receive Date: 20130417
  Receipt Date: 20130620
  Transmission Date: 20140414
  Serious: Yes (Other)
  Sender: FDA-Public Use
  Company Number: PHHY2013NO037217

PATIENT
  Sex: 0

DRUGS (1)
  1. SANDIMMUNE NEORAL [Suspect]

REACTIONS (2)
  - Neutrophil count decreased [Unknown]
  - Serum ferritin increased [Unknown]
